APPROVED DRUG PRODUCT: DROXIDOPA
Active Ingredient: DROXIDOPA
Strength: 100MG
Dosage Form/Route: CAPSULE;ORAL
Application: A214391 | Product #001 | TE Code: AB
Applicant: JUBILANT CADISTA PHARMACEUTICALS INC
Approved: Feb 18, 2021 | RLD: No | RS: No | Type: RX